FAERS Safety Report 21023646 (Version 2)
Quarter: 2022Q3

REPORT INFORMATION
  Report Type: Spontaneous
  Country: CZ (occurrence: CZ)
  Receive Date: 20220629
  Receipt Date: 20220707
  Transmission Date: 20221026
  Serious: Yes (Death, Other)
  Sender: FDA-Public Use
  Company Number: CZ-MYLANLABS-2022M1046716

PATIENT
  Age: 56 Year
  Sex: Female

DRUGS (13)
  1. OXALIPLATIN [Suspect]
     Active Substance: OXALIPLATIN
     Indication: Colon cancer
     Dosage: UNK
     Route: 065
  2. IRINOTECAN [Suspect]
     Active Substance: IRINOTECAN
     Indication: Product used for unknown indication
     Dosage: UNK
     Route: 065
  3. IRINOTECAN [Suspect]
     Active Substance: IRINOTECAN
     Dosage: UNK, DRUG START DATE: ??-JUN-2017
     Route: 065
  4. IRINOTECAN [Suspect]
     Active Substance: IRINOTECAN
     Dosage: UNK, START DATE: ??-OCT-2018
     Route: 065
  5. CAPECITABINE [Suspect]
     Active Substance: CAPECITABINE
     Indication: Product used for unknown indication
     Dosage: UNK, START DATE: ??-JUN-2017 00:00
     Route: 065
  6. BEVACIZUMAB [Suspect]
     Active Substance: BEVACIZUMAB
     Indication: Product used for unknown indication
     Dosage: UNK, START DATE : ??-JUN-2017 00:00
     Route: 065
  7. LEUCOVORIN CALCIUM [Concomitant]
     Active Substance: LEUCOVORIN CALCIUM
     Indication: Colon cancer
     Dosage: UNK
     Route: 065
  8. FLUOROURACIL [Concomitant]
     Active Substance: FLUOROURACIL
     Indication: Colon cancer
     Dosage: UNK
     Route: 065
  9. BEVACIZUMAB;FLUOROURACIL;FOLINIC ACID;OXALIPLATIN [Concomitant]
     Dosage: UNK
     Route: 065
  10. BEVACIZUMAB;CAPECITABINE;IRINOTECAN [Concomitant]
     Dosage: UNK, START DATE: ??-JUN-2017 00:00
     Route: 065
  11. Trifluridine and Tipiracil Hydrochloride [Concomitant]
     Dosage: UNK, START DATE: ??-MAR-2020 00:00
     Route: 065
  12. Trifluridine and Tipiracil Hydrochloride [Concomitant]
     Dosage: UNK
     Route: 065
  13. FLUOROURACIL\LEUCOVORIN [Concomitant]
     Active Substance: FLUOROURACIL\LEUCOVORIN
     Indication: Neuropathy peripheral
     Dosage: UNK
     Route: 065

REACTIONS (15)
  - Death [Fatal]
  - Ascites [Unknown]
  - Leukopenia [Unknown]
  - Metastases to liver [Unknown]
  - Metastases to spleen [Unknown]
  - Metastases to bone [Unknown]
  - Metastasis [Unknown]
  - Paraesthesia [Unknown]
  - Pleural effusion [Unknown]
  - Drug intolerance [Unknown]
  - Retroperitoneal lymphadenopathy [Unknown]
  - Disease progression [Unknown]
  - Jaundice [Unknown]
  - Diarrhoea [Unknown]
  - Nausea [Unknown]

NARRATIVE: CASE EVENT DATE: 20170101
